FAERS Safety Report 7865461-4 (Version None)
Quarter: 2011Q4

REPORT INFORMATION
  Report Type: 
  Country: None (occurrence: None)
  Receive Date: 20111028
  Receipt Date: 20101228
  Transmission Date: 20120403
  Serious: Yes (Other)
  Sender: FDA-Public Use
  Company Number: US-GLAXOSMITHKLINE-A0902235A

PATIENT
  Age: 76 Year
  Sex: Male

DRUGS (1)
  1. ADVAIR DISKUS 100/50 [Suspect]
     Indication: PRODUCT USED FOR UNKNOWN INDICATION

REACTIONS (2)
  - BRONCHITIS [None]
  - PNEUMONIA [None]
